FAERS Safety Report 5085871-0 (Version None)
Quarter: 2006Q3

REPORT INFORMATION
  Report Type: 
  Country: None (occurrence: None)
  Receive Date: 20060703
  Receipt Date: 20060227
  Transmission Date: 20061208
  Serious: No
  Sender: FDA-Public Use
  Company Number: 2006S1001839

PATIENT
  Age: 49 Year
  Sex: Male

DRUGS (9)
  1. CLOZAPINE [Suspect]
     Indication: SCHIZOPHRENIA, PARANOID TYPE
     Dosage: 100 MG;TID;PO
     Route: 048
     Dates: start: 20060125
  2. VALPROATE SODIUM [Concomitant]
  3. PROPRANOLOL HYDROCHLORIDE [Concomitant]
  4. QUETIAPINE FUMARATE [Concomitant]
  5. LORAZEPAM [Concomitant]
  6. FLURAZEPAM [Concomitant]
  7. PARACETAMOL [Concomitant]
  8. IPRATROPIUM BROMIDE/SALBUTAMOL SULFATE [Concomitant]
  9. ALBUTEROL SPIROS [Concomitant]

REACTIONS (1)
  - GRANULOCYTOPENIA [None]
